FAERS Safety Report 25698003 (Version 2)
Quarter: 2025Q3

REPORT INFORMATION
  Report Type: Spontaneous
  Country: GB (occurrence: GB)
  Receive Date: 20250819
  Receipt Date: 20250918
  Transmission Date: 20251020
  Serious: Yes (Hospitalization, Other)
  Sender: AUROBINDO
  Company Number: GB-MLMSERVICE-20250730-PI596316-00270-1

PATIENT
  Age: 54 Year
  Sex: Female

DRUGS (6)
  1. PREDNISOLONE [Suspect]
     Active Substance: PREDNISOLONE
     Indication: Rash pruritic
     Route: 065
  2. PREDNISOLONE [Suspect]
     Active Substance: PREDNISOLONE
     Indication: Rash macular
     Dosage: INCREASED DOSE
  3. PREDNISOLONE [Suspect]
     Active Substance: PREDNISOLONE
     Indication: Rash erythematous
  4. CYCLOSPORINE [Suspect]
     Active Substance: CYCLOSPORINE
     Indication: Rash pruritic
     Route: 065
  5. CYCLOSPORINE [Suspect]
     Active Substance: CYCLOSPORINE
     Indication: Rash macular
  6. CYCLOSPORINE [Suspect]
     Active Substance: CYCLOSPORINE
     Indication: Rash erythematous

REACTIONS (3)
  - Oral candidiasis [Unknown]
  - HIV-associated neurocognitive disorder [Recovering/Resolving]
  - Drug ineffective [Unknown]
